FAERS Safety Report 10515394 (Version 2)
Quarter: 2014Q4

REPORT INFORMATION
  Report Type: Report from Study
  Country: BE (occurrence: BE)
  Receive Date: 20141014
  Receipt Date: 20141105
  Transmission Date: 20150528
  Serious: Yes (Other)
  Sender: FDA-Public Use
  Company Number: BE-AUROBINDO-AUR-APL-2014-10795

PATIENT
  Age: 85 Year
  Sex: Male

DRUGS (1)
  1. MIRTAZAPINE 30MG [Suspect]
     Active Substance: MIRTAZAPINE
     Indication: DEMENTIA ALZHEIMER^S TYPE
     Dosage: 30 MG, DAILY
     Route: 065

REACTIONS (1)
  - Somnolence [Recovered/Resolved]
